FAERS Safety Report 5082577-9 (Version None)
Quarter: 2006Q3

REPORT INFORMATION
  Report Type: 
  Country: None (occurrence: None)
  Receive Date: 20060817
  Receipt Date: 20060807
  Transmission Date: 20061208
  Serious: Yes (Death)
  Sender: FDA-Public Use
  Company Number: US-BRISTOL-MYERS SQUIBB COMPANY-13467295

PATIENT
  Age: 58 Year
  Sex: Male

DRUGS (7)
  1. BLENOXANE [Suspect]
     Indication: GERM CELL CANCER
     Route: 042
     Dates: start: 20060711
  2. CISPLATIN [Suspect]
     Indication: GERM CELL CANCER
     Route: 042
     Dates: start: 20060711
  3. ETOPOSIDE [Suspect]
     Indication: GERM CELL CANCER
     Route: 042
     Dates: start: 20060711
  4. BENADRYL [Concomitant]
     Indication: PREMEDICATION
     Route: 042
  5. HYDROCORTISONE TAB [Concomitant]
     Indication: PREMEDICATION
     Route: 042
  6. ZOFRAN [Concomitant]
     Indication: PREMEDICATION
     Route: 048
  7. DECADRON [Concomitant]
     Indication: PREMEDICATION
     Route: 042

REACTIONS (1)
  - DEATH [None]
